FAERS Safety Report 5589677-5 (Version None)
Quarter: 2008Q1

REPORT INFORMATION
  Report Type: 
  Country: None (occurrence: None)
  Receive Date: 20080114
  Receipt Date: 20080103
  Transmission Date: 20080703
  Serious: Yes (Other)
  Sender: FDA-Public Use
  Company Number: B0399200A

PATIENT
  Sex: Female

DRUGS (5)
  1. PAROXETINE [Suspect]
     Route: 065
     Dates: start: 20010417
  2. PAROXETINE [Suspect]
     Route: 048
  3. BUSPIRONE HCL [Concomitant]
     Dates: start: 20050210, end: 20050419
  4. EFFEXOR [Concomitant]
     Dates: start: 20050401
  5. DIAZEPAM [Concomitant]
     Dates: start: 19900301, end: 20051219

REACTIONS (14)
  - ABNORMAL DREAMS [None]
  - CHILLS [None]
  - COMMUNICATION DISORDER [None]
  - DEPRESSION [None]
  - DYSKINESIA [None]
  - FATIGUE [None]
  - LETHARGY [None]
  - NAUSEA [None]
  - NIGHTMARE [None]
  - PARAESTHESIA [None]
  - SUICIDAL IDEATION [None]
  - TREMOR [None]
  - WEIGHT DECREASED [None]
  - WITHDRAWAL SYNDROME [None]
